FAERS Safety Report 11920131 (Version 1)
Quarter: 2016Q1

REPORT INFORMATION
  Report Type: Spontaneous
  Country: US (occurrence: US)
  Receive Date: 20160115
  Receipt Date: 20160115
  Transmission Date: 20160526
  Serious: Yes (Other)
  Sender: FDA-Public Use
  Company Number: US-GLAXOSMITHKLINE-US2016GSK003819

PATIENT
  Age: 7 Year
  Sex: Female

DRUGS (4)
  1. SALMETEROL XINAFOATE [Concomitant]
     Active Substance: SALMETEROL XINAFOATE
     Indication: PRODUCT USED FOR UNKNOWN INDICATION
     Dosage: UNK
  2. ALBUTEROL SULFATE. [Concomitant]
     Active Substance: ALBUTEROL SULFATE
     Indication: PRODUCT USED FOR UNKNOWN INDICATION
  3. CETIRIZINE [Concomitant]
     Active Substance: CETIRIZINE HYDROCHLORIDE
     Indication: PRODUCT USED FOR UNKNOWN INDICATION
     Dosage: UNK
  4. FLUTICASONE PROPIONATE. [Suspect]
     Active Substance: FLUTICASONE PROPIONATE
     Indication: ASTHMA
     Dosage: 220 UG, BID

REACTIONS (10)
  - Hypothalamic pituitary adrenal axis suppression [Unknown]
  - Hypoglycaemia [Unknown]
  - Adrenal insufficiency [Recovering/Resolving]
  - Pyrexia [Unknown]
  - Blood cortisol decreased [Recovered/Resolved]
  - Blood corticotrophin decreased [Unknown]
  - Seizure [Unknown]
  - Cough [Unknown]
  - Mental status changes [Unknown]
  - Fatigue [Unknown]
